FAERS Safety Report 6544530 (Version 22)
Quarter: 2013Q3

REPORT INFORMATION
  Report Type: Spontaneous
  Country: US (occurrence: US)
  Receive Date: 20080206
  Receipt Date: 20130815
  Transmission Date: 20140515
  Serious: Yes (Hospitalization, Other)
  Sender: FDA-Public Use
  Company Number: PHEH2008US01437

PATIENT
  Age: 65 Year
  Sex: Female

DRUGS (67)
  1. ZOMETA [Suspect]
     Indication: OSTEOPOROSIS
     Dosage: 4 MG, DAILY
     Dates: start: 20050712, end: 20060706
  2. ZOMETA [Suspect]
     Dosage: 3.3 MG, UNK
  3. HYDROCODONE W/ACETAMINOPHEN [Concomitant]
  4. PROCHLORPERAZINE [Concomitant]
  5. ARIMIDEX ^ASTRAZENECA^ [Concomitant]
  6. UNIVASC [Concomitant]
  7. OMEPRAZOLE [Concomitant]
  8. ORPHENADRINE [Concomitant]
  9. EFFEXOR [Concomitant]
  10. ATENOLOL [Concomitant]
  11. CLINORIL [Concomitant]
  12. TRAMADOL [Concomitant]
  13. FLUOXETINE [Concomitant]
  14. NAPROXEN [Concomitant]
  15. TRIAMTERENE AND HYDROCHLOROTHIAZID ^HARRIS^ [Concomitant]
  16. QUININE SULFATE [Concomitant]
  17. DIPHENHYDRAMINE [Concomitant]
  18. SPIRONOLACTONE [Concomitant]
  19. SUCRALFATE [Concomitant]
  20. MYTUSSIN DAC [Concomitant]
  21. NEXIUM [Concomitant]
  22. CEPHALEXIN [Concomitant]
  23. SULINDAC [Concomitant]
  24. CLINDAMYCIN [Concomitant]
  25. AMOXICILLIN W/CLAVULANATE POTASSIUM [Concomitant]
  26. GABAPENTIN [Concomitant]
  27. DAPSONE [Concomitant]
  28. HYDROCORTISONE [Concomitant]
     Dosage: 10 MG, BID
  29. FUROSEMIDE [Concomitant]
  30. MIRAPEX ^BOEHRINGER INGELHEIM^ [Concomitant]
  31. BENICAR [Concomitant]
  32. VENLAFAXINE [Concomitant]
  33. AMBIEN [Concomitant]
  34. DEPO-MEDROL [Concomitant]
     Dosage: 80 MG, QMO
  35. VYTONE [Concomitant]
     Route: 061
     Dates: start: 20080123
  36. KEFLEX                                  /UNK/ [Concomitant]
  37. NORVASC                                 /DEN/ [Concomitant]
  38. ULTRAM [Concomitant]
  39. VICODIN [Concomitant]
  40. CHLORDIAZEPOXIDE W/CLIDINIUM BROMIDE [Concomitant]
  41. DESOXIMETASONE [Concomitant]
  42. DIPHENOXYLATE W/ATROPINE SULFATE [Concomitant]
  43. LISINOPRIL [Concomitant]
  44. MECLIZINE [Concomitant]
  45. MOBIC [Concomitant]
  46. COMPAZINE [Concomitant]
  47. MEPERIDINE [Concomitant]
  48. TORADOL [Concomitant]
  49. PEPCID [Concomitant]
  50. CIPROFLOXACIN [Concomitant]
  51. IMODIUM [Concomitant]
  52. DOCUSATE [Concomitant]
  53. DIOVAN [Concomitant]
  54. ORPHENADRINE CITRATE [Concomitant]
     Dosage: 100 MG, BID
  55. CYCLOBENZAPRINE HYDROCHLORIDE [Concomitant]
     Dosage: 10 MG, TID, PRN
  56. MIRALAX [Concomitant]
     Dosage: 17 G, QD
  57. MICONAZOLE NITRATE [Concomitant]
  58. ARICEPT [Concomitant]
     Dosage: 1 MG, QD
  59. DIFLUCAN [Concomitant]
     Dosage: 150 MG, QD
  60. METOPROLOL [Concomitant]
     Dosage: 50 MG, BID
  61. CLONIDINE HYDROCHLORIDE [Concomitant]
     Dosage: 0.1 MG, Q4H
  62. CITALOPRAM HYDROCHLORIDE [Concomitant]
  63. PROTONIX [Concomitant]
     Dosage: 40 MG, QHS
     Route: 048
  64. ANCEF [Concomitant]
     Dosage: 1 G, Q8H
  65. PERCOCET [Concomitant]
     Dosage: 5 - 325 MG, Q4H
     Route: 048
  66. ZOFRAN [Concomitant]
     Dosage: 4 MG/2ML, Q8H
     Route: 042
  67. PHENERGAN ^AVENTIS PHARMA^ [Concomitant]

REACTIONS (86)
  - Pyoderma gangrenosum [Unknown]
  - Corneal dystrophy [Unknown]
  - Osteopenia [Unknown]
  - Ankle fracture [Unknown]
  - Joint dislocation [Unknown]
  - Rotator cuff syndrome [Recovered/Resolved]
  - Bursitis [Unknown]
  - Ulnar neuritis [Unknown]
  - Skin ulcer [Unknown]
  - Osteonecrosis of jaw [Unknown]
  - Pain [Unknown]
  - Anxiety [Unknown]
  - General physical health deterioration [Unknown]
  - Resorption bone increased [Unknown]
  - Syncope [Unknown]
  - Microangiopathy [Unknown]
  - Left atrial dilatation [Unknown]
  - Diarrhoea [Recovered/Resolved]
  - Fall [Unknown]
  - Intertrigo [Unknown]
  - Eczema [Unknown]
  - Pruritus [Unknown]
  - Gastritis [Unknown]
  - Hyponatraemia [Unknown]
  - Road traffic accident [Unknown]
  - Dry mouth [Unknown]
  - Dry eye [Unknown]
  - Wound infection pseudomonas [Unknown]
  - Melanosis coli [Unknown]
  - Mucosal inflammation [Unknown]
  - Diverticulum [Unknown]
  - Glare [Unknown]
  - Cataract [Unknown]
  - Conjunctivochalasis [Unknown]
  - Vitreous floaters [Unknown]
  - Obesity [Unknown]
  - Dermatitis contact [Unknown]
  - Otitis media [Unknown]
  - Electrocardiogram T wave abnormal [Unknown]
  - Gastrooesophageal reflux disease [Unknown]
  - Abdominal pain [Unknown]
  - Abdominal pain lower [Unknown]
  - Bone loss [Unknown]
  - Back pain [Unknown]
  - Joint swelling [Unknown]
  - Cystitis [Unknown]
  - Visual impairment [Unknown]
  - Constipation [Unknown]
  - Inflammatory bowel disease [Unknown]
  - Abscess [Unknown]
  - Enteritis [Unknown]
  - Lumbar spinal stenosis [Unknown]
  - Vertebral foraminal stenosis [Unknown]
  - Radiculopathy [Unknown]
  - Urinary incontinence [Unknown]
  - Colitis [Unknown]
  - Vision blurred [Unknown]
  - Facial pain [Unknown]
  - Dyspepsia [Unknown]
  - Vulvovaginal mycotic infection [Unknown]
  - Respiratory tract congestion [Unknown]
  - Dyspnoea [Unknown]
  - Deep vein thrombosis [Unknown]
  - Venous insufficiency [Unknown]
  - Local swelling [Unknown]
  - Rheumatoid arthritis [Unknown]
  - Gait disturbance [Unknown]
  - Osteonecrosis [Unknown]
  - Ingrowing nail [Unknown]
  - Dementia [Unknown]
  - Hypoaesthesia [Unknown]
  - Insomnia [Unknown]
  - Fatigue [Unknown]
  - Flatulence [Unknown]
  - Pain in jaw [Unknown]
  - Oral discomfort [Unknown]
  - Loose tooth [Unknown]
  - Glaucoma [Unknown]
  - Tooth loss [Unknown]
  - Varicose vein [Unknown]
  - Varicose ulceration [Unknown]
  - Increased tendency to bruise [Unknown]
  - Excoriation [Unknown]
  - Tendon disorder [Unknown]
  - Fungal skin infection [Unknown]
  - Cerumen impaction [Unknown]
